FAERS Safety Report 12501945 (Version 3)
Quarter: 2016Q3

REPORT INFORMATION
  Report Type: Spontaneous
  Country: AT (occurrence: AT)
  Receive Date: 20160627
  Receipt Date: 20160706
  Transmission Date: 20161109
  Serious: Yes (Death, Hospitalization)
  Sender: FDA-Public Use
  Company Number: AT-ABBVIE-16P-009-1661551-00

PATIENT
  Age: 77 Year
  Sex: Male

DRUGS (1)
  1. DUODOPA [Suspect]
     Active Substance: CARBIDOPA\LEVODOPA
     Indication: PARKINSON^S DISEASE
     Dosage: 16 HOUR THERAPY:?MD: 8.5 ML?CR: 2.8 ML/H?ED: 2.3 ML
     Route: 050
     Dates: start: 20110512

REACTIONS (2)
  - Inguinal hernia [Unknown]
  - Death [Fatal]

NARRATIVE: CASE EVENT DATE: 20160626
